FAERS Safety Report 5352960-2 (Version None)
Quarter: 2007Q2

REPORT INFORMATION
  Report Type: 
  Country: None (occurrence: None)
  Receive Date: 20070611
  Receipt Date: 20070530
  Transmission Date: 20071010
  Serious: Yes (Other)
  Sender: FDA-Public Use
  Company Number: US-PFIZER INC-2007045010

PATIENT
  Sex: Female
  Weight: 72.727 kg

DRUGS (13)
  1. LYRICA [Suspect]
     Indication: BURNING SENSATION
  2. LYRICA [Suspect]
     Indication: HYPOAESTHESIA
  3. COUMADIN [Concomitant]
  4. LANOXIN [Concomitant]
  5. BISOPROLOL FUMARATE [Concomitant]
  6. ZOCOR [Concomitant]
  7. TRICOR [Concomitant]
  8. LASIX [Concomitant]
  9. DRUG, UNSPECIFIED [Concomitant]
     Indication: VISION BLURRED
     Route: 047
  10. VITAMIN A [Concomitant]
  11. VITAMIN D [Concomitant]
  12. VITAMIN B COMPLEX CAP [Concomitant]
  13. FOLIC ACID [Concomitant]

REACTIONS (5)
  - BLOOD GLUCOSE INCREASED [None]
  - BLOOD POTASSIUM DECREASED [None]
  - DRY MOUTH [None]
  - SOMNOLENCE [None]
  - SWELLING [None]
